FAERS Safety Report 5874299-9 (Version None)
Quarter: 2008Q3

REPORT INFORMATION
  Report Type: 
  Country: None (occurrence: None)
  Receive Date: 20080908
  Receipt Date: 20080829
  Transmission Date: 20090109
  Serious: Yes (Hospitalization, Other)
  Sender: FDA-Public Use
  Company Number: US-PURDUE-USA_2008_0034719

PATIENT
  Sex: Male

DRUGS (3)
  1. OXYCONTIN [Suspect]
     Indication: PAIN
     Dosage: 40 MG, SEE TEXT
     Route: 048
     Dates: start: 20080827
  2. LORTAB [Concomitant]
     Indication: PAIN
     Dosage: 7.5 MG, Q4H
     Route: 048
  3. LIBRIUM ^HOFFMAN^ [Concomitant]
     Dosage: UNK UNK, UNK

REACTIONS (5)
  - AGITATION [None]
  - DELIRIUM TREMENS [None]
  - MENTAL STATUS CHANGES [None]
  - PAIN [None]
  - UNRESPONSIVE TO STIMULI [None]
